FAERS Safety Report 7573933-5 (Version None)
Quarter: 2011Q2

REPORT INFORMATION
  Report Type: 
  Country: None (occurrence: None)
  Receive Date: 20110627
  Receipt Date: 20110624
  Transmission Date: 20111010
  Serious: Yes (Other)
  Sender: FDA-Public Use
  Company Number: US-PFIZER INC-2011141274

PATIENT
  Sex: Female
  Weight: 56.69 kg

DRUGS (5)
  1. ALLEGRA [Concomitant]
     Indication: HYPERSENSITIVITY
     Dosage: UNK
  2. CALCIUM [Concomitant]
     Dosage: UNK
  3. EFFEXOR [Suspect]
     Indication: HOT FLUSH
     Dosage: 37.5 MG, 1X/DAY
     Route: 048
  4. TEGRETOL [Concomitant]
     Indication: TRIGEMINAL NEURALGIA
     Dosage: UNK, 1X/DAY
  5. VITAMIN D [Concomitant]
     Dosage: UNK

REACTIONS (4)
  - WRONG TECHNIQUE IN DRUG USAGE PROCESS [None]
  - VERTIGO [None]
  - DRUG INEFFECTIVE [None]
  - NERVOUSNESS [None]
